FAERS Safety Report 13463214 (Version 1)
Quarter: 2017Q2

REPORT INFORMATION
  Report Type: Spontaneous
  Country: JP (occurrence: JP)
  Receive Date: 20170420
  Receipt Date: 20170420
  Transmission Date: 20170830
  Serious: Yes (Other)
  Sender: FDA-Public Use
  Company Number: JP-SA-2017SA070431

PATIENT

DRUGS (1)
  1. FEXOFENADINE HYDROCHLORIDE SANIK [Suspect]
     Active Substance: FEXOFENADINE HYDROCHLORIDE
     Route: 048
     Dates: start: 20170414

REACTIONS (2)
  - Joint swelling [Unknown]
  - Joint fluid drainage [Unknown]

NARRATIVE: CASE EVENT DATE: 20170415
